FAERS Safety Report 7020316-2 (Version None)
Quarter: 2010Q3

REPORT INFORMATION
  Report Type: 
  Country: None (occurrence: None)
  Receive Date: 20100927
  Receipt Date: 20100913
  Transmission Date: 20110219
  Serious: Yes (Hospitalization)
  Sender: FDA-Public Use
  Company Number: 018637

PATIENT
  Sex: Female
  Weight: 73 kg

DRUGS (4)
  1. CIMZIA [Suspect]
     Indication: CROHN'S DISEASE
     Dosage: (400 MG 1X/MONTH SUBCUTANEOUS)
     Route: 058
     Dates: start: 20091109
  2. AMITRIPTYLINE HCL [Concomitant]
  3. ALLEGRA [Concomitant]
  4. BENADRYL [Concomitant]

REACTIONS (6)
  - ARTHRALGIA [None]
  - CATHETER SITE INFECTION [None]
  - CELLULITIS [None]
  - PURULENCE [None]
  - SMALL INTESTINAL OBSTRUCTION [None]
  - STAPHYLOCOCCAL BACTERAEMIA [None]
